FAERS Safety Report 5119872-0 (Version None)
Quarter: 2006Q4

REPORT INFORMATION
  Report Type: 
  Country: None (occurrence: None)
  Receive Date: 20061003
  Receipt Date: 20060928
  Transmission Date: 20070319
  Serious: Yes (Other)
  Sender: FDA-Public Use
  Company Number: GB-BOEHRINGER INGELHEIM PHARMACEUTICALS, INC.-2006-BP-11520YA

PATIENT
  Age: 78 Year
  Sex: Male

DRUGS (7)
  1. FLOMAX [Suspect]
     Route: 048
  2. AMITRIPTYLINE HCL [Concomitant]
  3. FLIXOTIDE [Concomitant]
  4. PANTOPRAZOLE SODIUM [Concomitant]
  5. SEREVENT [Concomitant]
  6. VALPROATE SODIUM [Concomitant]
  7. VENTOLIN [Concomitant]

REACTIONS (1)
  - IRIS INJURY [None]
